FAERS Safety Report 5265265-5 (Version None)
Quarter: 2007Q1

REPORT INFORMATION
  Report Type: 
  Country: None (occurrence: None)
  Receive Date: 20061121
  Receipt Date: 20061019
  Transmission Date: 20070707
  Serious: No
  Sender: FDA-Public Use
  Company Number: TPA2006A01831

PATIENT
  Age: 55 Year
  Sex: Female
  Weight: 73.9363 kg

DRUGS (14)
  1. ROZEREM [Suspect]
     Indication: SLEEP DISORDER
     Dosage: 8 MG, HS, PER ORAL
     Route: 048
     Dates: start: 20061012
  2. THEOPHYLLINE [Concomitant]
  3. TRAZODONE HCL [Concomitant]
  4. CARBAMAZEPINE [Concomitant]
  5. PHENOBARBITAL TAB [Concomitant]
  6. SYNTHROID [Concomitant]
  7. CYTOMEL [Concomitant]
  8. ALLEGRA D (PSEUDOPHEDRINE HYDROCHLORIDE, FEXOFENADINE HYDROCHLORIDE) [Concomitant]
  9. DIAMOX [Concomitant]
  10. CONCERTA [Concomitant]
  11. NOVOLIN N [Concomitant]
  12. OXYCONTIN [Concomitant]
  13. SONATA [Concomitant]
  14. UNK HRT (HORMONES AND RELATED AGENTS) [Concomitant]

REACTIONS (2)
  - DYSPNOEA [None]
  - WHEEZING [None]
